FAERS Safety Report 13275219 (Version 3)
Quarter: 2017Q1

REPORT INFORMATION
  Report Type: Report from Study
  Country: JP (occurrence: JP)
  Receive Date: 20170227
  Receipt Date: 20170308
  Transmission Date: 20170428
  Serious: Yes (Death, Other)
  Sender: FDA-Public Use
  Company Number: JP-AMGEN-JPNCT2017030560

PATIENT
  Age: 71 Year
  Sex: Male
  Weight: 60.5 kg

DRUGS (6)
  1. PANITUMUMAB [Suspect]
     Active Substance: PANITUMUMAB
     Indication: COLON CANCER
     Dosage: 360 MG, Q2WK
     Route: 041
     Dates: start: 20170215, end: 20170215
  2. FOSMICIN                           /00552502/ [Concomitant]
     Active Substance: FOSFOMYCIN CALCIUM
     Indication: URINARY TRACT INFECTION
     Dosage: 2 DF, TID
     Route: 048
     Dates: end: 20170219
  3. OXALIPLATIN. [Concomitant]
     Active Substance: OXALIPLATIN
     Indication: RECTAL CANCER
     Dosage: 140 MG, Q2WEEKS
     Route: 041
     Dates: start: 20170215, end: 20170215
  4. CALCIUM LEVOFOLINATE [Concomitant]
     Active Substance: LEVOLEUCOVORIN CALCIUM
     Indication: RECTAL CANCER
     Dosage: 325 MG, Q2WEEKS
     Route: 041
     Dates: start: 20170215, end: 20170215
  5. 5-FU                               /00098801/ [Concomitant]
     Active Substance: FLUOROURACIL
     Indication: RECTAL CANCER
     Dosage: 650 MG, Q2WK
     Route: 040
     Dates: start: 20170215, end: 20170215
  6. 5-FU                               /00098801/ [Concomitant]
     Active Substance: FLUOROURACIL
     Dosage: 4050 MG, Q2WEEKS
     Route: 041
     Dates: start: 20170215, end: 20170215

REACTIONS (2)
  - Death [Fatal]
  - Decreased appetite [Unknown]

NARRATIVE: CASE EVENT DATE: 20170219
